FAERS Safety Report 11976066 (Version 1)
Quarter: 2016Q1

REPORT INFORMATION
  Report Type: Spontaneous
  Country: IL (occurrence: IL)
  Receive Date: 20160129
  Receipt Date: 20160129
  Transmission Date: 20160526
  Serious: Yes (Hospitalization)
  Sender: FDA-Public Use
  Company Number: IL-BIOVITRUM-2015IL0427

PATIENT
  Sex: Female

DRUGS (2)
  1. ILARIS [Concomitant]
     Active Substance: CANAKINUMAB
     Indication: SCHNITZLER^S SYNDROME
     Dates: start: 20150619
  2. KINERET [Suspect]
     Active Substance: ANAKINRA
     Route: 058
     Dates: start: 20150706

REACTIONS (2)
  - Lymphoma [Unknown]
  - Lymphadenopathy [Unknown]
